FAERS Safety Report 19680518 (Version 1)
Quarter: 2021Q3

REPORT INFORMATION
  Report Type: Spontaneous
  Country: US (occurrence: US)
  Receive Date: 20210809
  Receipt Date: 20210809
  Transmission Date: 20211014
  Serious: Yes (Other)
  Sender: FDA-Public Use
  Company Number: None

PATIENT
  Age: 3 Year
  Sex: Female
  Weight: 10.7 kg

DRUGS (1)
  1. SCOPOLAMINE 1MG/72HR [Suspect]
     Active Substance: SCOPOLAMINE
     Dosage: ?          OTHER STRENGTH:1 MG/72HR;?
     Dates: start: 20210609

REACTIONS (2)
  - Product substitution issue [None]
  - Therapeutic product effect decreased [None]
